FAERS Safety Report 8968409 (Version 1)
Quarter: 2012Q4

REPORT INFORMATION
  Report Type: 
  Country: US (occurrence: US)
  Receive Date: 20121218
  Receipt Date: 20121218
  Transmission Date: 20130627
  Serious: No
  Sender: FDA-Public Use
  Company Number: US-BRISTOL-MYERS SQUIBB COMPANY-16784175

PATIENT
  Age: 76 Year
  Sex: Female

DRUGS (3)
  1. ABILIFY [Suspect]
     Indication: DEPRESSION
     Dosage: duration: 6months
     Route: 048
     Dates: start: 20110926, end: 20120402
  2. ABILIFY [Suspect]
     Indication: ANXIETY
     Dosage: duration: 6months
     Route: 048
     Dates: start: 20110926, end: 20120402
  3. CELEXA [Concomitant]
     Dates: start: 20110926

REACTIONS (2)
  - Dyskinesia [Not Recovered/Not Resolved]
  - Muscle twitching [Recovered/Resolved]
